FAERS Safety Report 23641467 (Version 1)
Quarter: 2024Q1

REPORT INFORMATION
  Report Type: Spontaneous
  Country: US (occurrence: US)
  Receive Date: 20240318
  Receipt Date: 20240318
  Transmission Date: 20240409
  Serious: No
  Sender: FDA-Public Use
  Company Number: US-ESPERIONTHERAPEUTICS-2024USA00059

PATIENT
  Age: 60 Year
  Sex: Male

DRUGS (3)
  1. NEXLETOL [Suspect]
     Active Substance: BEMPEDOIC ACID
     Indication: Arteriosclerosis
     Dosage: UNK
     Route: 065
  2. NEXLETOL [Suspect]
     Active Substance: BEMPEDOIC ACID
     Indication: Low density lipoprotein abnormal
  3. NEXLETOL [Suspect]
     Active Substance: BEMPEDOIC ACID
     Indication: Drug ineffective

REACTIONS (2)
  - Tendon disorder [Recovered/Resolved]
  - Tendon pain [Recovered/Resolved]
